FAERS Safety Report 5007402-3 (Version None)
Quarter: 2006Q2

REPORT INFORMATION
  Report Type: 
  Country: None (occurrence: None)
  Receive Date: 20060518
  Receipt Date: 20060518
  Transmission Date: 20061013
  Serious: Yes (Hospitalization)
  Sender: FDA-Public Use
  Company Number: None

PATIENT
  Sex: Male

DRUGS (11)
  1. WARFARIN SODIUM [Suspect]
     Indication: ATRIAL FIBRILLATION
     Dosage: 5 MG DAILY PO
     Route: 048
     Dates: start: 20060216, end: 20060307
  2. ATENOLOL [Concomitant]
  3. LISINOPRIL [Concomitant]
  4. RANITIDINE [Concomitant]
  5. ATORVASTATIN CALCIUM [Concomitant]
  6. TRAMADOL HCL [Concomitant]
  7. CYCLOBENZAPRINE HCL [Concomitant]
  8. SENNA [Concomitant]
  9. NORTRIPTYLINE HCL [Concomitant]
  10. ASPIRIN [Concomitant]
  11. HYDROCORTISONE SUPPOSITORY [Concomitant]

REACTIONS (3)
  - FLANK PAIN [None]
  - HAEMATURIA [None]
  - INTERNATIONAL NORMALISED RATIO INCREASED [None]
